FAERS Safety Report 19026474 (Version 1)
Quarter: 2021Q1

REPORT INFORMATION
  Report Type: Report from Study
  Country: IN (occurrence: IN)
  Receive Date: 20210318
  Receipt Date: 20210318
  Transmission Date: 20210420
  Serious: Yes (Other)
  Sender: FDA-Public Use
  Company Number: IN-MYLANLABS-2021M1016205

PATIENT
  Age: 25 Year
  Sex: Male

DRUGS (2)
  1. CYTARABINE. [Suspect]
     Active Substance: CYTARABINE
     Dosage: CONSOLIDATION THERAPY WITH HIGH?DOSE
     Route: 065
  2. CYTARABINE. [Suspect]
     Active Substance: CYTARABINE
     Indication: ACUTE MYELOID LEUKAEMIA
     Dosage: AS A PART OF 7+3 INDUCTION REGIMEN
     Route: 065
     Dates: start: 2017

REACTIONS (3)
  - Febrile neutropenia [Unknown]
  - Thrombophlebitis [Unknown]
  - Proctalgia [Unknown]
